FAERS Safety Report 23827253 (Version 8)
Quarter: 2024Q3

REPORT INFORMATION
  Report Type: Spontaneous
  Country: US (occurrence: US)
  Receive Date: 20240507
  Receipt Date: 20240815
  Transmission Date: 20241017
  Serious: No
  Sender: PFIZER
  Company Number: US-PFIZER INC-202400099892

PATIENT
  Age: 5 Year
  Sex: Male
  Weight: 15.3 kg

DRUGS (2)
  1. GENOTROPIN [Suspect]
     Active Substance: SOMATROPIN
     Indication: Short stature
     Dosage: 0.6 MG, DAILY
     Route: 058
  2. GENOTROPIN [Suspect]
     Active Substance: SOMATROPIN
     Dosage: 0.6 MG, DAILY
     Route: 058

REACTIONS (3)
  - Device breakage [Recovered/Resolved]
  - Device malfunction [Recovered/Resolved]
  - Poor quality device used [Recovered/Resolved]

NARRATIVE: CASE EVENT DATE: 20240301
